FAERS Safety Report 8089178-9 (Version None)
Quarter: 2012Q1

REPORT INFORMATION
  Report Type: 
  Country: None (occurrence: None)
  Receive Date: 20120128
  Receipt Date: 20110824
  Transmission Date: 20120608
  Serious: No
  Sender: FDA-Public Use
  Company Number: US-ABBOTT-11P-163-0731624-00

PATIENT
  Sex: Female
  Weight: 77.18 kg

DRUGS (3)
  1. METHOTREXATE [Concomitant]
     Indication: RHEUMATOID ARTHRITIS
     Route: 048
  2. HUMIRA [Suspect]
     Indication: RHEUMATOID ARTHRITIS
     Route: 058
     Dates: start: 20110401
  3. PREDNISONE TAB [Concomitant]
     Indication: RHEUMATOID ARTHRITIS

REACTIONS (6)
  - BREAKTHROUGH PAIN [None]
  - SWELLING [None]
  - DRUG DOSE OMISSION [None]
  - ACCIDENTAL EXPOSURE [None]
  - RHEUMATOID ARTHRITIS [None]
  - DEVICE MALFUNCTION [None]
